FAERS Safety Report 11877901 (Version 2)
Quarter: 2022Q2

REPORT INFORMATION
  Report Type: Spontaneous
  Country: IN (occurrence: IN)
  Receive Date: 20151230
  Receipt Date: 20220407
  Transmission Date: 20220721
  Serious: Yes (Death, Other)
  Sender: FDA-Public Use
  Company Number: IN-CIPLA LTD.-2015IN10009

PATIENT

DRUGS (2)
  1. CARBOPLATIN [Suspect]
     Active Substance: CARBOPLATIN
     Indication: Ovarian cancer
     Dosage: UNK, TOTAL CUMULATIVE DOSE 2700 MG FOR 6 CYCLES
     Route: 065
  2. PACLITAXEL [Suspect]
     Active Substance: PACLITAXEL
     Indication: Ovarian cancer
     Dosage: UNK, TOTAL CUMULATIVE DOSE 1200 MG FOR 6 CYCLES
     Route: 065

REACTIONS (5)
  - Cardiac arrest [Fatal]
  - Leukaemic infiltration pulmonary [Fatal]
  - Central nervous system leukaemia [Fatal]
  - Acute leukaemia [Not Recovered/Not Resolved]
  - Myeloproliferative neoplasm [Not Recovered/Not Resolved]

NARRATIVE: CASE EVENT DATE: 20130201
